FAERS Safety Report 18898079 (Version 1)
Quarter: 2021Q1

REPORT INFORMATION
  Report Type: Spontaneous
  Country: US (occurrence: US)
  Receive Date: 20210213
  Receipt Date: 20210213
  Transmission Date: 20210420
  Serious: Yes (Other)
  Sender: FDA-Public Use
  Company Number: None

PATIENT
  Age: 62 Year
  Sex: Female
  Weight: 83.25 kg

DRUGS (2)
  1. DIFLUCAN [Concomitant]
     Active Substance: FLUCONAZOLE
  2. CLOTRIMAZOLE AND BETAMETHAZONE DIPROPIONATE [Suspect]
     Active Substance: BETAMETHASONE\BETAMETHASONE DIPROPIONATE\CLOTRIMAZOLE
     Indication: CANDIDA INFECTION
     Dates: start: 20210210, end: 20210210

REACTIONS (6)
  - Blood blister [None]
  - Peripheral swelling [None]
  - Eye infection [None]
  - Candida infection [None]
  - Vaginal infection [None]
  - Pain in extremity [None]

NARRATIVE: CASE EVENT DATE: 20210210
